FAERS Safety Report 25597076 (Version 1)
Quarter: 2025Q3

REPORT INFORMATION
  Report Type: Spontaneous
  Country: VN (occurrence: VN)
  Receive Date: 20250723
  Receipt Date: 20250723
  Transmission Date: 20251020
  Serious: Yes (Hospitalization)
  Sender: MERCK SHARP & DOHME LLC
  Company Number: VN-009507513-2311340

PATIENT
  Age: 64 Year
  Sex: Male

DRUGS (1)
  1. PEMBROLIZUMAB [Suspect]
     Active Substance: PEMBROLIZUMAB

REACTIONS (4)
  - Oesophageal wall hypertrophy [Recovered/Resolved]
  - Lung disorder [Recovered/Resolved]
  - Oral submucosal fibrosis [Recovered/Resolved]
  - Gastritis [Recovered/Resolved]
